FAERS Safety Report 8847901 (Version 3)
Quarter: 2013Q1

REPORT INFORMATION
  Report Type: Spontaneous
  Country: US (occurrence: US)
  Receive Date: 20121018
  Receipt Date: 20130205
  Transmission Date: 20140127
  Serious: Yes (Other)
  Sender: FDA-Public Use
  Company Number: US-PFIZER INC-2012257921

PATIENT
  Age: 57 Year
  Sex: Female
  Weight: 90.7 kg

DRUGS (11)
  1. PROTONIX [Suspect]
     Dosage: 40 MG, 2X/DAY
     Dates: start: 2004
  2. PREMARIN [Suspect]
     Dosage: 0.9 MG, DAILY
     Dates: start: 2004
  3. PRISTIQ [Suspect]
     Dosage: 100 MG, DAILY
     Dates: start: 2011
  4. NEURONTIN [Concomitant]
     Dosage: UNK
  5. BACLOFEN [Concomitant]
     Dosage: UNK
  6. ALTACE [Concomitant]
     Dosage: UNK
  7. LEVOTHYROXINE [Concomitant]
     Dosage: UNK
  8. DILAUDID [Concomitant]
     Dosage: UNK
  9. KCL [Concomitant]
     Dosage: UNK
  10. FLUTICASONE [Concomitant]
     Dosage: UNK
  11. BUMEX [Concomitant]
     Dosage: UNK

REACTIONS (3)
  - Mental impairment [Recovering/Resolving]
  - Fall [Unknown]
  - Pain [Recovering/Resolving]
